FAERS Safety Report 24698767 (Version 2)
Quarter: 2025Q3

REPORT INFORMATION
  Report Type: Spontaneous
  Country: US (occurrence: US)
  Receive Date: 20241205
  Receipt Date: 20250722
  Transmission Date: 20251021
  Serious: No
  Sender: TEVA
  Company Number: US-TEVA-VS-3265652

PATIENT
  Age: 60 Year
  Sex: Female

DRUGS (2)
  1. AJOVY [Suspect]
     Active Substance: FREMANEZUMAB-VFRM
     Indication: Product used for unknown indication
     Route: 065
  2. CALCIUM [Concomitant]
     Active Substance: CALCIUM
     Indication: Product used for unknown indication
     Route: 065

REACTIONS (1)
  - Vitamin D deficiency [Unknown]
